FAERS Safety Report 9460890 (Version 2)
Quarter: 2013Q3

REPORT INFORMATION
  Report Type: Spontaneous
  Country: US (occurrence: US)
  Receive Date: 20130816
  Receipt Date: 20130826
  Transmission Date: 20140515
  Serious: No
  Sender: FDA-Public Use
  Company Number: US-009507513-1308USA004661

PATIENT
  Age: 68 Year
  Sex: Female

DRUGS (2)
  1. DULERA [Suspect]
     Indication: ASTHMA
     Dosage: INHALER(EA) 200/5 MCRG, 2  PUFFS IN AM AND 2 AT BEDTIME
     Route: 055
     Dates: start: 201306
  2. ASPIRIN [Concomitant]

REACTIONS (2)
  - Nodule [Not Recovered/Not Resolved]
  - Nodule [Not Recovered/Not Resolved]
